FAERS Safety Report 12502217 (Version 2)
Quarter: 2016Q3

REPORT INFORMATION
  Report Type: Spontaneous
  Country: BR (occurrence: BR)
  Receive Date: 20160627
  Receipt Date: 20160712
  Transmission Date: 20161109
  Serious: Yes (Death, Hospitalization, Other)
  Sender: FDA-Public Use
  Company Number: BR-GILEAD-2016-0219981

PATIENT
  Age: 58 Year
  Sex: Female

DRUGS (2)
  1. SOVALDI [Suspect]
     Active Substance: SOFOSBUVIR
     Indication: HEPATITIS C
     Dosage: 400 MG, UNK
     Route: 065
     Dates: start: 20160429, end: 20160612
  2. DACLATASVIR. [Concomitant]
     Active Substance: DACLATASVIR
     Indication: PRODUCT USED FOR UNKNOWN INDICATION

REACTIONS (10)
  - Spinal fracture [Recovered/Resolved]
  - Cryoglobulinaemia [Fatal]
  - Blood pressure decreased [Unknown]
  - Proteinuria [Fatal]
  - Hypertension [Unknown]
  - Fall [Recovered/Resolved]
  - Hypotension [Fatal]
  - Renal impairment [Fatal]
  - Pallor [Unknown]
  - Pain [Unknown]

NARRATIVE: CASE EVENT DATE: 20160505
